FAERS Safety Report 24201799 (Version 1)
Quarter: 2024Q3

REPORT INFORMATION
  Report Type: Report from Study
  Country: US (occurrence: None)
  Receive Date: 20240812
  Receipt Date: 20240812
  Transmission Date: 20241017
  Serious: Yes (Other)
  Sender: ASTRAZENECA
  Company Number: 2024A181242

PATIENT
  Sex: Female

DRUGS (1)
  1. TAGRISSO [Suspect]
     Active Substance: OSIMERTINIB
     Indication: Lung carcinoma cell type unspecified stage I
     Route: 048
     Dates: start: 202406

REACTIONS (7)
  - Macular degeneration [Unknown]
  - Stomatitis [Unknown]
  - Rash [Unknown]
  - Joint swelling [Unknown]
  - Restless legs syndrome [Unknown]
  - Blood pressure increased [Unknown]
  - Visual impairment [Unknown]
